FAERS Safety Report 16228837 (Version 1)
Quarter: 2019Q2

REPORT INFORMATION
  Report Type: Spontaneous
  Country: US (occurrence: US)
  Receive Date: 20190319
  Receipt Date: 20190319
  Transmission Date: 20190711
  Serious: Yes (Disabling)
  Sender: FDA-Public Use
  Company Number: None

PATIENT
  Age: 82 Year
  Sex: Female
  Weight: 98.88 kg

DRUGS (5)
  1. ELIQUIS [Concomitant]
     Active Substance: APIXABAN
  2. ROSUVASTATIN 5MG [Suspect]
     Active Substance: ROSUVASTATIN
     Indication: BLOOD CHOLESTEROL
     Dosage: ?          QUANTITY:5 MG MILLIGRAM(S);OTHER FREQUENCY:ONCE IN THE MORNIN;?
     Route: 048
     Dates: start: 20180619, end: 20180630
  3. BISOPROLOL/HCTZ [Suspect]
     Active Substance: BISOPROLOL FUMARATE\HYDROCHLOROTHIAZIDE
     Indication: HYPERTENSION
     Dosage: ?          QUANTITY:5 MG MILLIGRAM(S);OTHER FREQUENCY:ONCE IN THE MORNIN;?
     Route: 048
     Dates: start: 20180615, end: 20180619
  4. HYDROCHLOROTHIAZIDE. [Concomitant]
     Active Substance: HYDROCHLOROTHIAZIDE
  5. CLARITIN [Suspect]
     Active Substance: LORATADINE

REACTIONS (2)
  - Limb discomfort [None]
  - Myalgia [None]

NARRATIVE: CASE EVENT DATE: 20180605
